FAERS Safety Report 7670322-X (Version None)
Quarter: 2011Q3

REPORT INFORMATION
  Report Type: 
  Country: None (occurrence: None)
  Receive Date: 20110809
  Receipt Date: 20110729
  Transmission Date: 20111222
  Serious: No
  Sender: FDA-Public Use
  Company Number: US-BIOGENIDEC-2010BI019874

PATIENT
  Age: 65 Year
  Sex: Female

DRUGS (2)
  1. TYSABRI [Suspect]
     Indication: MULTIPLE SCLEROSIS
     Route: 042
     Dates: start: 20081013, end: 20090414
  2. TYSABRI [Suspect]
     Route: 042
     Dates: start: 20091218

REACTIONS (2)
  - TEMPERATURE INTOLERANCE [None]
  - MULTIPLE SCLEROSIS RELAPSE [None]
